FAERS Safety Report 9422334 (Version 6)
Quarter: 2014Q3

REPORT INFORMATION
  Report Type: Report from Study
  Country: FR (occurrence: FR)
  Receive Date: 20130726
  Receipt Date: 20140811
  Transmission Date: 20150326
  Serious: Yes (Death, Hospitalization)
  Sender: FDA-Public Use
  Company Number: FR-TEVA-420257ISR

PATIENT
  Age: 56 Year
  Sex: Female
  Weight: 60 kg

DRUGS (9)
  1. AVASTIN [Suspect]
     Active Substance: BEVACIZUMAB
     Indication: COLON CANCER
     Route: 041
     Dates: start: 201305
  2. MATRIFEN [Concomitant]
     Active Substance: FENTANYL
  3. ATROPINE [Concomitant]
     Active Substance: ATROPINE
  4. EFFENTORA [Suspect]
     Active Substance: FENTANYL CITRATE
     Indication: PAIN
     Dosage: 200 MICROGRAM DAILY;
     Route: 002
     Dates: start: 20130614
  5. FLUOROURACILE [Suspect]
     Active Substance: FLUOROURACIL
     Indication: COLON CANCER
     Route: 041
     Dates: end: 201202
  6. PARACETAMOL [Suspect]
     Active Substance: ACETAMINOPHEN
     Route: 048
     Dates: start: 2011, end: 20130715
  7. DEXAMETHASONE. [Concomitant]
     Active Substance: DEXAMETHASONE
  8. CAMPTO [Suspect]
     Active Substance: IRINOTECAN
     Indication: COLON CANCER
     Dosage: 290 MG
     Route: 042
     Dates: start: 201305
  9. PARIET [Suspect]
     Active Substance: RABEPRAZOLE SODIUM
     Dosage: 40 MILLIGRAM DAILY;
     Route: 048
     Dates: start: 2011, end: 20130715

REACTIONS (7)
  - Hepatic pain [Recovered/Resolved]
  - General physical health deterioration [Unknown]
  - Hepatitis [Unknown]
  - Transaminases increased [Recovered/Resolved]
  - Blood alkaline phosphatase increased [Recovered/Resolved]
  - Death [Fatal]
  - Gamma-glutamyltransferase increased [Recovered/Resolved]

NARRATIVE: CASE EVENT DATE: 20130713
